FAERS Safety Report 5091570-1 (Version None)
Quarter: 2006Q3

REPORT INFORMATION
  Report Type: 
  Country: None (occurrence: None)
  Receive Date: 20060824
  Receipt Date: 20060814
  Transmission Date: 20061208
  Serious: Yes (Other)
  Sender: FDA-Public Use
  Company Number: 2005BI022326

PATIENT
  Age: 51 Year
  Sex: Female

DRUGS (1)
  1. AVONEX [Suspect]
     Indication: MULTIPLE SCLEROSIS
     Dosage: 30 UG; QW; IM
     Route: 030
     Dates: start: 20031003

REACTIONS (6)
  - FEELING ABNORMAL [None]
  - MALAISE [None]
  - NAUSEA [None]
  - PYREXIA [None]
  - URINARY TRACT INFECTION [None]
  - VOMITING [None]
